FAERS Safety Report 17816358 (Version 1)
Quarter: 2020Q2

REPORT INFORMATION
  Report Type: Spontaneous
  Country: HK (occurrence: HK)
  Receive Date: 20200522
  Receipt Date: 20200522
  Transmission Date: 20200714
  Serious: Yes (Hospitalization)
  Sender: FDA-Public Use
  Company Number: HK-MYLANLABS-2020M1050945

PATIENT
  Age: 15 Year
  Sex: Male

DRUGS (5)
  1. TRANEXAMIC ACID. [Suspect]
     Active Substance: TRANEXAMIC ACID
     Indication: POST PROCEDURAL HAEMORRHAGE
     Dosage: UNK
     Route: 061
  2. EPINEPHRINE. [Suspect]
     Active Substance: EPINEPHRINE
     Indication: POST PROCEDURAL HAEMORRHAGE
     Dosage: MANUAL COMPRESSION WITH 1:1000 ADRENALINE-SOAKED GAUZE.
     Route: 065
  3. TRANEXAMIC ACID. [Suspect]
     Active Substance: TRANEXAMIC ACID
     Indication: POST PROCEDURAL HAEMORRHAGE
     Dosage: UNK
     Route: 042
  4. TRANEXAMIC ACID. [Suspect]
     Active Substance: TRANEXAMIC ACID
     Indication: POST PROCEDURAL HAEMORRHAGE
     Dosage: MOUTHWASH
     Route: 048
  5. TRANEXAMIC ACID. [Suspect]
     Active Substance: TRANEXAMIC ACID
     Indication: POST PROCEDURAL HAEMORRHAGE
     Dosage: 1 GRAM, Q6H
     Route: 048

REACTIONS (2)
  - Off label use [Unknown]
  - Drug ineffective [Unknown]
